FAERS Safety Report 4811337-6 (Version None)
Quarter: 2005Q4

REPORT INFORMATION
  Report Type: 
  Country: None (occurrence: None)
  Receive Date: 20051026
  Receipt Date: 20051026
  Transmission Date: 20060501
  Serious: No
  Sender: FDA-Public Use
  Company Number: None

PATIENT
  Age: 10 Year
  Sex: Female
  Weight: 22.6799 kg

DRUGS (1)
  1. STRATTERA [Suspect]
     Indication: DISTURBANCE IN ATTENTION
     Dosage: 25 MG QD
     Dates: start: 20050101, end: 20051001

REACTIONS (4)
  - ABNORMAL BEHAVIOUR [None]
  - AGITATION [None]
  - IRRITABILITY [None]
  - NEGATIVE THOUGHTS [None]
